FAERS Safety Report 16784410 (Version 1)
Quarter: 2019Q3

REPORT INFORMATION
  Report Type: Spontaneous
  Country: GB (occurrence: GB)
  Receive Date: 20190909
  Receipt Date: 20190909
  Transmission Date: 20191005
  Serious: Yes (Other)
  Sender: FDA-Public Use
  Company Number: GB-ADVANZ PHARMA-201909000150

PATIENT

DRUGS (1)
  1. PREDNISOLONE. [Suspect]
     Active Substance: PREDNISOLONE
     Indication: CATARACT
     Dosage: 8 DROP, QD
     Route: 047
     Dates: start: 20190801

REACTIONS (3)
  - Foreign body sensation in eyes [Not Recovered/Not Resolved]
  - Eye pain [Not Recovered/Not Resolved]
  - Dry eye [Not Recovered/Not Resolved]

NARRATIVE: CASE EVENT DATE: 20190801
